FAERS Safety Report 10021557 (Version 1)
Quarter: 2014Q1

REPORT INFORMATION
  Report Type: Spontaneous
  Country: US (occurrence: None)
  Receive Date: 20140318
  Receipt Date: 20140318
  Transmission Date: 20141002
  Serious: Yes (Life-Threatening, Hospitalization, Disabling, Other)
  Sender: FDA-Public Use
  Company Number: None

PATIENT
  Age: 33 Year
  Sex: Female
  Weight: 56.7 kg

DRUGS (2)
  1. PAROXETINE [Suspect]
     Indication: DEPRESSION
     Dosage: TAKE 1 PILL EVERY NIGHT AT BEDTIME TAKEN BY MOUTH
     Route: 048
     Dates: start: 20090801, end: 20140314
  2. PAROXETINE [Suspect]
     Indication: DIVORCED
     Dosage: TAKE 1 PILL EVERY NIGHT AT BEDTIME TAKEN BY MOUTH
     Route: 048
     Dates: start: 20090801, end: 20140314

REACTIONS (3)
  - Surgery [None]
  - Volvulus [None]
  - Condition aggravated [None]
